FAERS Safety Report 6640722-5 (Version None)
Quarter: 2010Q1

REPORT INFORMATION
  Report Type: 
  Country: None (occurrence: None)
  Receive Date: 20100318
  Receipt Date: 20100305
  Transmission Date: 20100710
  Serious: Yes (Hospitalization)
  Sender: FDA-Public Use
  Company Number: US-ELI_LILLY_AND_COMPANY-US200911007308

PATIENT
  Sex: Male
  Weight: 102.4 kg

DRUGS (4)
  1. BYETTA [Suspect]
     Dosage: UNK, UNKNOWN
     Route: 065
     Dates: start: 20060301, end: 20080818
  2. GLYBURIDE [Concomitant]
     Indication: DIABETES MELLITUS
  3. GEMFIBROZIL [Concomitant]
  4. BUTROPIUM [Concomitant]

REACTIONS (2)
  - PANCREATITIS [None]
  - RENAL INJURY [None]
